FAERS Safety Report 21126269 (Version 4)
Quarter: 2023Q2

REPORT INFORMATION
  Report Type: Spontaneous
  Country: US (occurrence: US)
  Receive Date: 20220725
  Receipt Date: 20230411
  Transmission Date: 20230722
  Serious: No
  Sender: FDA-Public Use
  Company Number: US-BIOGEN-2022BI01141796

PATIENT
  Sex: Male

DRUGS (1)
  1. TECFIDERA [Suspect]
     Active Substance: DIMETHYL FUMARATE
     Indication: Multiple sclerosis
     Route: 050

REACTIONS (5)
  - Confusional state [Not Recovered/Not Resolved]
  - Headache [Unknown]
  - Multiple sclerosis [Unknown]
  - Oedema peripheral [Unknown]
  - Road traffic accident [Recovered/Resolved]
